FAERS Safety Report 9192752 (Version 1)
Quarter: 2013Q1

REPORT INFORMATION
  Report Type: Report from Study
  Country: CA (occurrence: CA)
  Receive Date: 20130327
  Receipt Date: 20130327
  Transmission Date: 20140127
  Serious: Yes (Hospitalization, Other)
  Sender: FDA-Public Use
  Company Number: CA-UCBSA-077751

PATIENT
  Age: 46 Year
  Sex: Female
  Weight: 70 kg

DRUGS (10)
  1. CIMZIA [Suspect]
     Indication: RHEUMATOID ARTHRITIS
     Route: 058
     Dates: start: 20120821, end: 20121024
  2. CIMZIA [Suspect]
     Indication: RHEUMATOID ARTHRITIS
     Route: 058
     Dates: start: 20120710, end: 20120807
  3. CIMZIA [Suspect]
     Indication: RHEUMATOID ARTHRITIS
     Route: 058
     Dates: start: 201301, end: 201301
  4. ATACAND [Concomitant]
     Indication: HYPERTENSION
     Route: 048
  5. TAPAZOLE [Concomitant]
     Indication: BASEDOW^S DISEASE
     Route: 048
  6. PERCOCET [Concomitant]
     Indication: ANALGESIC THERAPY
     Dosage: 4-6 TABLETS DAILY
     Route: 048
  7. OXYCONTIN [Concomitant]
     Indication: ANALGESIC THERAPY
     Dosage: 1-2 TABLETS ONCE DAILY AS REQUIRED
     Route: 048
  8. TAMAZEPAM [Concomitant]
     Indication: INSOMNIA
     Dosage: ONCE AT BED TIME
     Route: 048
  9. INSULIN PUMP [Concomitant]
     Indication: DIABETES MELLITUS
     Dates: start: 20120419
  10. METHOTREXATE [Concomitant]

REACTIONS (2)
  - Post procedural infection [Recovered/Resolved]
  - Psoriatic arthropathy [Unknown]
